FAERS Safety Report 6892071-8 (Version None)
Quarter: 2010Q3

REPORT INFORMATION
  Report Type: 
  Country: None (occurrence: None)
  Receive Date: 20100731
  Receipt Date: 20080104
  Transmission Date: 20110219
  Serious: No
  Sender: FDA-Public Use
  Company Number: US-PFIZER INC-2008001619

PATIENT
  Sex: Male

DRUGS (1)
  1. INSPRA [Suspect]
     Indication: HYPERTENSION

REACTIONS (3)
  - DIZZINESS [None]
  - MOTOR DYSFUNCTION [None]
  - SPEECH DISORDER [None]
